FAERS Safety Report 12780893 (Version 2)
Quarter: 2016Q4

REPORT INFORMATION
  Report Type: Report from Study
  Country: FR (occurrence: FR)
  Receive Date: 20160926
  Receipt Date: 20161010
  Transmission Date: 20170207
  Serious: Yes (Death, Hospitalization)
  Sender: FDA-Public Use
  Company Number: PHHO2016FR010935

PATIENT
  Age: 75 Year
  Sex: Male
  Weight: 85 kg

DRUGS (15)
  1. MECIR [Concomitant]
     Active Substance: TAMSULOSIN HYDROCHLORIDE
     Indication: PRODUCT USED FOR UNKNOWN INDICATION
     Dosage: UNK
     Route: 048
     Dates: end: 20160804
  2. AZACITIDINE. [Suspect]
     Active Substance: AZACITIDINE
     Dosage: 75 MG/M2, UNK
     Route: 058
     Dates: start: 20160614, end: 20160620
  3. INEXIUM//ESOMEPRAZOLE SODIUM [Concomitant]
     Active Substance: ESOMEPRAZOLE SODIUM
     Indication: PROPHYLAXIS
     Dosage: 20 MG, QD
     Route: 048
     Dates: end: 20160817
  4. MOVECIL [Concomitant]
     Dosage: 2 DOSES
     Route: 048
  5. AZACITIDINE. [Suspect]
     Active Substance: AZACITIDINE
     Dosage: 75 MG/M2, UNK
     Route: 058
     Dates: end: 20160711
  6. AMLOR [Concomitant]
     Active Substance: AMLODIPINE BESYLATE
     Indication: HYPERTENSION
     Dosage: UNK
     Route: 065
     Dates: end: 20160804
  7. DITROPAN [Concomitant]
     Active Substance: OXYBUTYNIN CHLORIDE
     Indication: PRODUCT USED FOR UNKNOWN INDICATION
     Dosage: 15 MG, QD
     Route: 048
  8. AZACITIDINE. [Suspect]
     Active Substance: AZACITIDINE
     Indication: MYELODYSPLASTIC SYNDROME
     Dosage: 75 MG/M2, UNK, CYCLE 1
     Route: 058
     Dates: start: 20160418, end: 20160424
  9. NOVORAPID [Concomitant]
     Active Substance: INSULIN ASPART
     Indication: DIABETES MELLITUS
     Dosage: 4 IU, AS NEEDED
     Route: 058
     Dates: end: 20160817
  10. XATRAL [Concomitant]
     Active Substance: ALFUZOSIN
     Indication: PRODUCT USED FOR UNKNOWN INDICATION
     Dosage: 10 MG, QD
     Route: 048
  11. LDE 225 [Suspect]
     Active Substance: ERISMODEGIB
     Indication: MYELODYSPLASTIC SYNDROME
     Dosage: 400 MG, UNK
     Route: 048
     Dates: start: 20160418, end: 20160711
  12. AZACITIDINE. [Suspect]
     Active Substance: AZACITIDINE
     Dosage: 75 MG/M2, UNK, CYCLE 2
     Route: 058
     Dates: start: 20160517, end: 20160523
  13. TOPALGIC//TRAMADOL HYDROCHLORIDE [Concomitant]
     Active Substance: TRAMADOL HYDROCHLORIDE
     Indication: ANALGESIC THERAPY
     Dosage: 300 MG, QD
     Route: 048
  14. LANTUS [Concomitant]
     Active Substance: INSULIN GLARGINE
     Indication: DIABETES MELLITUS
     Dosage: 14 IU, QD
     Route: 058
     Dates: end: 20160817
  15. LEVOTHYROX [Concomitant]
     Active Substance: LEVOTHYROXINE
     Indication: HYPOTHYROIDISM
     Dosage: 250 UG, QD
     Route: 048
     Dates: end: 20160817

REACTIONS (2)
  - Sepsis [Fatal]
  - Pneumonia [Fatal]

NARRATIVE: CASE EVENT DATE: 20160523
